FAERS Safety Report 7571895-8 (Version None)
Quarter: 2011Q2

REPORT INFORMATION
  Report Type: 
  Country: None (occurrence: None)
  Receive Date: 20110624
  Receipt Date: 20100727
  Transmission Date: 20111010
  Serious: No
  Sender: FDA-Public Use
  Company Number: A0874109A

PATIENT
  Age: 58 Year
  Sex: Female

DRUGS (1)
  1. VERAMYST [Suspect]
     Route: 045
     Dates: start: 20100101, end: 20100727

REACTIONS (1)
  - DRUG INEFFECTIVE [None]
